FAERS Safety Report 4957862-9 (Version None)
Quarter: 2006Q1

REPORT INFORMATION
  Report Type: 
  Country: None (occurrence: None)
  Receive Date: 20060324
  Receipt Date: 20060315
  Transmission Date: 20060701
  Serious: Yes (Hospitalization)
  Sender: FDA-Public Use
  Company Number: A001-320-886

PATIENT
  Age: 79 Year
  Sex: Female
  Weight: 55.6 kg

DRUGS (11)
  1. DONEPEZIL HCL [Suspect]
     Indication: VASCULAR DEMENTIA
     Dosage: 5 MG, 1 IN 1 D, ORAL
     Route: 048
     Dates: start: 20050525, end: 20050721
  2. DONEPEZIL HCL [Suspect]
     Indication: VASCULAR DEMENTIA
     Dosage: DOUBLEBLIND, 1 IN 1 D, ORAL
     Route: 048
     Dates: start: 20041207, end: 20050524
  3. AMILORIDE HYDROCHLORIDE HYDROCHLOROTHIAZIDE (MODURETIC) [Concomitant]
  4. ASPIRIN [Concomitant]
  5. ATORVASTATIN CALCIUM [Suspect]
     Indication: BLOOD CHOLESTEROL INCREASED
     Dosage: 10 MG, ORAL
     Route: 048
     Dates: start: 20040801, end: 20060228
  6. METFORMIN HCL [Suspect]
     Indication: BLOOD GLUCOSE INCREASED
     Dosage: 1500 MG, ORAL
     Route: 048
     Dates: start: 19990101, end: 20060228
  7. PRAZOSIN HCL [Concomitant]
  8. GLICLAZIDE (GLICLAZIDE) [Concomitant]
  9. RABEPRAZOLE SODIUM [Concomitant]
  10. TIMOLOL MALEATE 0.5% (TIMOLOL MALEATE) [Concomitant]
  11. LATANOPROST [Concomitant]

REACTIONS (6)
  - CONSTIPATION [None]
  - DYSTONIA [None]
  - HIATUS HERNIA [None]
  - OESOPHAGITIS [None]
  - TREMOR [None]
  - WEIGHT DECREASED [None]
